FAERS Safety Report 24394961 (Version 2)
Quarter: 2024Q4

REPORT INFORMATION
  Report Type: Spontaneous
  Country: US (occurrence: US)
  Receive Date: 20241004
  Receipt Date: 20241022
  Transmission Date: 20250114
  Serious: No
  Sender: EPIC PHARM
  Company Number: US-EPICPHARMA-US-2024EPCSPO01172

PATIENT
  Age: 81 Year
  Sex: Male
  Weight: 190 kg

DRUGS (1)
  1. DEXTROAMPHETAMINE SACCHARATE, AMPHETAMINE ASPARTATE, DEXTROAMPHETAMINE [Suspect]
     Active Substance: DEXTROAMPHETAMINE SACCHARATE, AMPHETAMINE ASPARTATE, DEXTROAMPHETAMINE SULFATE AND AMPHETAMINE SULFA
     Indication: Attention deficit hyperactivity disorder
     Route: 048

REACTIONS (2)
  - Drug ineffective [Unknown]
  - Dry mouth [Unknown]
